FAERS Safety Report 18586251 (Version 4)
Quarter: 2024Q1

REPORT INFORMATION
  Report Type: Spontaneous
  Country: AT (occurrence: AT)
  Receive Date: 20201207
  Receipt Date: 20240327
  Transmission Date: 20240410
  Serious: Yes (Other)
  Sender: FDA-Public Use
  Company Number: AT-ROCHE-2713700

PATIENT
  Age: 72 Year
  Sex: Female
  Weight: 53 kg

DRUGS (35)
  1. XGEVA [Suspect]
     Active Substance: DENOSUMAB
     Indication: HER2 positive breast cancer
     Dosage: 120 MILLIGRAM, Q4WK
     Route: 058
     Dates: start: 20161121
  2. PERJETA [Suspect]
     Active Substance: PERTUZUMAB
     Indication: HER2 positive breast cancer
     Dosage: 420 MILLIGRAM, Q3WK;MOST RECENT DOSE PRIOR TO THE EVENT: 27/FEB/2020
     Route: 042
     Dates: start: 20160629
  3. PERJETA [Suspect]
     Active Substance: PERTUZUMAB
     Dosage: 420 MILLIGRAM, Q4WK (DATE OF LAST ADMINISTRATION: 27/FEB/2020)
     Route: 042
     Dates: start: 20180719
  4. PERJETA [Suspect]
     Active Substance: PERTUZUMAB
     Dosage: 420 MILLIGRAM, Q3WK (DATE OF LAST ADMINISTRATION: 20/MAY/2020)
     Route: 042
     Dates: start: 20200227
  5. TAXOTERE [Suspect]
     Active Substance: DOCETAXEL
     Indication: HER2 positive breast cancer
     Dosage: 80 MILLIGRAM/SQ. METER, Q3WK/ LAST DOSE ADMINISTERED: 01-SEP-2016
     Route: 042
     Dates: start: 20160629
  6. FEMARA [Suspect]
     Active Substance: LETROZOLE
     Indication: HER2 positive breast cancer
     Dosage: 2.5 MILLIGRAM, QD/ LAST DOSE ADMINISTERED: 29-JUN-2020
     Route: 048
     Dates: start: 20161021
  7. FASLODEX [Suspect]
     Active Substance: FULVESTRANT
     Indication: HER2 positive breast cancer
     Dosage: 500 MILLIGRAM, Q4WK/ MOST RECENT DOSE /OCT/2021
     Route: 058
     Dates: start: 20200716
  8. RIBOCICLIB [Suspect]
     Active Substance: RIBOCICLIB
     Indication: HER2 positive breast cancer
     Dosage: 600 MILLIGRAM/ MOST RECENT DOSE PRIOR TO THE EVENT: 16/JUL/2020
     Route: 048
     Dates: start: 20200716, end: 202008
  9. RIBOCICLIB [Suspect]
     Active Substance: RIBOCICLIB
     Dosage: 400 MILLIGRAM (DATE OF LAST DOSE ADMINISTARTION: 18/SEP/2020)
     Route: 048
     Dates: start: 20200824
  10. HERCEPTIN [Suspect]
     Active Substance: TRASTUZUMAB
     Indication: HER2 positive breast cancer
     Dosage: 354 MILLIGRAM, Q3WK/ MOST RECENT DOSE PRIOR TO THE EVENT: 27/FEB/2020
     Route: 042
     Dates: start: 20160629
  11. HERCEPTIN [Suspect]
     Active Substance: TRASTUZUMAB
     Dosage: 372 MILLIGRAM, Q3WK (DATE OF LAST ADMINISTRATION: 20/MAY/2020)
     Route: 042
     Dates: start: 20200227
  12. HERCEPTIN [Suspect]
     Active Substance: TRASTUZUMAB
     Dosage: 372 MILLIGRAM, Q4WK (DATE OF LAST DOSE ADMINISTARTION: 27/FEB/2020)
     Route: 042
     Dates: start: 20180719
  13. PALBOCICLIB [Suspect]
     Active Substance: PALBOCICLIB
     Indication: HER2 positive breast cancer
     Dosage: 100 MILLIGRAM/ MOST RECENT DOSE PRIOR TO THE EVENT: DEC 2020
     Route: 048
     Dates: start: 202011
  14. PALBOCICLIB [Suspect]
     Active Substance: PALBOCICLIB
     Dosage: UNK (DATE OF LAST ADMINISTARTION: OCT/2021)
     Route: 048
     Dates: start: 202012
  15. NEBIVOLOL HYDROCHLORIDE [Concomitant]
     Active Substance: NEBIVOLOL HYDROCHLORIDE
     Dosage: UNK
     Dates: start: 20170115
  16. EUTHYROX [Concomitant]
     Active Substance: LEVOTHYROXINE SODIUM
     Dosage: UNK (DATE OF LAST ADMINISTARTION: 22/FEB/2021)
  17. DIPRODERM [BETAMETHASONE DIPROPIONATE] [Concomitant]
     Indication: Rash
     Dosage: UNK
     Dates: start: 20180621
  18. LISINOPRIL [Concomitant]
     Active Substance: LISINOPRIL
     Dosage: UNK
     Dates: start: 20170115, end: 20210915
  19. ASPIRIN [Concomitant]
     Active Substance: ASPIRIN
     Dosage: UNK
     Dates: start: 20170115
  20. METHYLPREDNISOLONE ACEPONATE [Concomitant]
     Active Substance: METHYLPREDNISOLONE ACEPONATE
     Indication: Palmar-plantar erythrodysaesthesia syndrome
     Dosage: UNK
     Dates: start: 20201111
  21. BETAISODONA [Concomitant]
     Active Substance: POVIDONE-IODINE
     Indication: Paronychia
     Dosage: UNK
     Dates: start: 20201111
  22. Ospen [Concomitant]
     Indication: Osteonecrosis of jaw
     Dosage: UNK
     Route: 065
     Dates: start: 20210114, end: 20210915
  23. AMOXICILLIN\CLAVULANATE POTASSIUM [Concomitant]
     Active Substance: AMOXICILLIN\CLAVULANATE POTASSIUM
  24. TRAMADOL [Concomitant]
     Active Substance: TRAMADOL\TRAMADOL HYDROCHLORIDE
  25. ENOXAPARIN SODIUM [Concomitant]
     Active Substance: ENOXAPARIN SODIUM
  26. ONDANSETRON [Concomitant]
     Active Substance: ONDANSETRON
  27. MOMETASONE FUROATE [Concomitant]
     Active Substance: MOMETASONE FUROATE
  28. Novalgin [Concomitant]
  29. LOPERAMIDE HYDROCHLORIDE [Concomitant]
     Active Substance: LOPERAMIDE HYDROCHLORIDE
  30. Kalioral [Concomitant]
  31. LASIX [Concomitant]
     Active Substance: FUROSEMIDE
  32. DEXAMETHASONE [Concomitant]
     Active Substance: DEXAMETHASONE
  33. APREPITANT [Concomitant]
     Active Substance: APREPITANT
  34. HYDROMORPHONE HYDROCHLORIDE [Concomitant]
     Active Substance: HYDROMORPHONE HYDROCHLORIDE
  35. PANTOPRAZOLE SODIUM [Concomitant]
     Active Substance: PANTOPRAZOLE SODIUM

REACTIONS (3)
  - Neutropenia [Recovered/Resolved]
  - Neutropenia [Recovered/Resolved]
  - Off label use [Unknown]

NARRATIVE: CASE EVENT DATE: 20161121
